FAERS Safety Report 13608268 (Version 1)
Quarter: 2017Q2

REPORT INFORMATION
  Report Type: Spontaneous
  Country: US (occurrence: US)
  Receive Date: 20170602
  Receipt Date: 20170602
  Transmission Date: 20170830
  Serious: No
  Sender: FDA-Public Use
  Company Number: US-PERRIGO-16US018897

PATIENT
  Sex: Male
  Weight: 68.27 kg

DRUGS (4)
  1. PERMETHRIN. [Suspect]
     Active Substance: PERMETHRIN
     Dosage: 30-60 GM, SINGLE
     Route: 061
     Dates: start: 201606, end: 201606
  2. PERMETHRIN. [Suspect]
     Active Substance: PERMETHRIN
     Indication: ACARODERMATITIS
     Dosage: 30-60 GM, SINGLE
     Route: 061
     Dates: start: 201606, end: 201606
  3. PERMETHRIN. [Suspect]
     Active Substance: PERMETHRIN
     Dosage: 30-60 GM, SINGLE
     Route: 061
     Dates: start: 201607, end: 201607
  4. PERMETHRIN. [Suspect]
     Active Substance: PERMETHRIN
     Dosage: 30-60 GM, SINGLE
     Route: 061
     Dates: start: 20160730, end: 20160730

REACTIONS (5)
  - Application site erythema [Not Recovered/Not Resolved]
  - Inappropriate schedule of drug administration [Recovered/Resolved]
  - Drug ineffective [Unknown]
  - Application site pruritus [Not Recovered/Not Resolved]
  - Incorrect drug administration duration [Not Recovered/Not Resolved]

NARRATIVE: CASE EVENT DATE: 2016
